FAERS Safety Report 10934294 (Version 1)
Quarter: 2015Q1

REPORT INFORMATION
  Report Type: Spontaneous
  Country: BR (occurrence: BR)
  Receive Date: 20150320
  Receipt Date: 20150320
  Transmission Date: 20150721
  Serious: Yes (Death)
  Sender: FDA-Public Use
  Company Number: BR-PFIZER INC-2013071819

PATIENT
  Age: 57 Year
  Sex: Male

DRUGS (1)
  1. SUTENT [Suspect]
     Active Substance: SUNITINIB MALATE
     Indication: METASTATIC RENAL CELL CARCINOMA
     Dosage: 50 MG, 1X/DAY, CYCLIC 1X1
     Route: 048
     Dates: start: 20121226

REACTIONS (11)
  - Blister [Recovering/Resolving]
  - Ageusia [Recovering/Resolving]
  - Ear discomfort [Recovering/Resolving]
  - Skin irritation [Unknown]
  - Oral pain [Recovering/Resolving]
  - Eye irritation [Recovering/Resolving]
  - Nasal discomfort [Recovering/Resolving]
  - Death [Fatal]
  - Wound [Unknown]
  - Stomatitis [Unknown]
  - Blood pressure increased [Unknown]

NARRATIVE: CASE EVENT DATE: 201411
